FAERS Safety Report 5808025-6 (Version None)
Quarter: 2008Q3

REPORT INFORMATION
  Report Type: 
  Country: None (occurrence: None)
  Receive Date: 20080711
  Receipt Date: 20080703
  Transmission Date: 20090109
  Serious: Yes (Hospitalization, Other)
  Sender: FDA-Public Use
  Company Number: JP-PFIZER INC-2008055809

PATIENT
  Age: 34 Year
  Sex: Male

DRUGS (2)
  1. NORVASC [Suspect]
     Dosage: TEXT:5 DOSE FORM
     Route: 048
  2. DRUG, UNSPECIFIED [Suspect]
     Route: 048

REACTIONS (4)
  - COMA [None]
  - INTENTIONAL OVERDOSE [None]
  - SUICIDE ATTEMPT [None]
  - VOMITING [None]
